FAERS Safety Report 24568952 (Version 1)
Quarter: 2024Q4

REPORT INFORMATION
  Report Type: Spontaneous
  Country: FR (occurrence: FR)
  Receive Date: 20241031
  Receipt Date: 20241031
  Transmission Date: 20250114
  Serious: Yes (Death)
  Sender: RECORDATI
  Company Number: FR-RECORDATI RARE DISEASE INC.-2024008392

PATIENT

DRUGS (1)
  1. SYLVANT [Suspect]
     Active Substance: SILTUXIMAB
     Indication: Product used for unknown indication
     Dosage: 1 DOSE, 1 TIME

REACTIONS (1)
  - Death [Fatal]
